FAERS Safety Report 4330273-5 (Version None)
Quarter: 2004Q1

REPORT INFORMATION
  Report Type: 
  Country: None (occurrence: None)
  Receive Date: 20040329
  Receipt Date: 20040315
  Transmission Date: 20041129
  Serious: Yes (Hospitalization)
  Sender: FDA-Public Use
  Company Number: 2004018058

PATIENT
  Age: 82 Year
  Sex: Female

DRUGS (4)
  1. NEURONTIN [Suspect]
     Indication: CEREBRAL ARTERITIS
     Dosage: 900 MG (TID), ORAL
     Route: 048
     Dates: start: 20030903, end: 20040118
  2. DIGOXIN [Concomitant]
  3. FUROSEMIDE [Concomitant]
  4. OMEPRAZOLE [Concomitant]

REACTIONS (2)
  - CHRONIC FATIGUE SYNDROME [None]
  - SYNCOPE [None]
